FAERS Safety Report 24314257 (Version 2)
Quarter: 2024Q4

REPORT INFORMATION
  Report Type: Report from Study
  Country: US (occurrence: US)
  Receive Date: 20240912
  Receipt Date: 20241009
  Transmission Date: 20250114
  Serious: No
  Sender: JOHNSON AND JOHNSON
  Company Number: US-JNJFOC-20240854902

PATIENT
  Age: 59 Year
  Sex: Female

DRUGS (6)
  1. STELARA [Suspect]
     Active Substance: USTEKINUMAB
     Indication: Colitis ulcerative
     Route: 058
     Dates: start: 20240816
  2. STELARA [Suspect]
     Active Substance: USTEKINUMAB
  3. CALTRATE [Concomitant]
     Active Substance: CALCIUM CARBONATE
  4. PRAVASTATIN [Concomitant]
     Active Substance: PRAVASTATIN
  5. PROGESTERONE [Concomitant]
     Active Substance: PROGESTERONE
  6. XOLAIR [Concomitant]
     Active Substance: OMALIZUMAB

REACTIONS (4)
  - Device issue [Unknown]
  - Device difficult to use [Unknown]
  - Accidental exposure to product [Unknown]
  - Product dose omission issue [Unknown]

NARRATIVE: CASE EVENT DATE: 20240817
